FAERS Safety Report 6639841-9 (Version None)
Quarter: 2010Q1

REPORT INFORMATION
  Report Type: 
  Country: None (occurrence: None)
  Receive Date: 20100315
  Receipt Date: 20100301
  Transmission Date: 20100710
  Serious: Yes (Hospitalization)
  Sender: FDA-Public Use
  Company Number: 015277

PATIENT
  Age: 71 Year
  Sex: Male

DRUGS (2)
  1. VERAPAMIL EXTENDED-RELEASE [Suspect]
     Indication: ATRIAL FIBRILLATION
     Dosage: 240 MG, SINGLE, ORAL
     Route: 048
  2. ATENOLOL [Concomitant]

REACTIONS (4)
  - CARDIOGENIC SHOCK [None]
  - CORONARY ARTERY STENOSIS [None]
  - DYSPNOEA [None]
  - MYASTHENIA GRAVIS [None]
